FAERS Safety Report 14015839 (Version 4)
Quarter: 2017Q4

REPORT INFORMATION
  Report Type: Spontaneous
  Country: JP (occurrence: JP)
  Receive Date: 20170927
  Receipt Date: 20171127
  Transmission Date: 20180321
  Serious: No
  Sender: FDA-Public Use
  Company Number: JP-SHIONOGI, INC-2017000935

PATIENT
  Age: 62 Year
  Sex: Male
  Weight: 42.6 kg

DRUGS (8)
  1. LECICARBON                         /00739901/ [Concomitant]
     Active Substance: LECITHIN\SODIUM BICARBONATE\SODIUM PHOSPHATE, MONOBASIC
     Indication: GASTRIC CANCER
     Dosage: 2.6 G, QD
     Route: 054
     Dates: start: 20170327
  2. LASIX [Concomitant]
     Active Substance: FUROSEMIDE
     Indication: GASTRIC CANCER
     Dosage: 10 MG, QD
     Route: 048
     Dates: start: 20170323
  3. MAGMITT [Concomitant]
     Active Substance: MAGNESIUM OXIDE
     Indication: GASTRIC CANCER
     Dosage: 250 MG, TID
     Route: 048
     Dates: start: 20170209
  4. SYMPROIC [Suspect]
     Active Substance: NALDEMEDINE
     Indication: CONSTIPATION
     Dosage: 0.2 MG, QD
     Route: 048
     Dates: start: 20170829
  5. TS-1 [Suspect]
     Active Substance: GIMERACIL\OTERACIL\TEGAFUR
     Indication: GASTRIC CANCER
     Dosage: 50 MG, BID
     Route: 048
     Dates: start: 20151112
  6. MIYA-BM [Concomitant]
     Active Substance: CLOSTRIDIUM BUTYRICUM SPORES STRAIN M-55
     Indication: GASTRIC CANCER
     Dosage: 1 G, TID
     Route: 048
     Dates: start: 20151202
  7. FENTOS [Concomitant]
     Active Substance: FENTANYL
     Indication: GASTRIC CANCER
     Dosage: 0.5 MG, QD
     Route: 062
     Dates: start: 20170213
  8. ALDACTONE A [Concomitant]
     Active Substance: SPIRONOLACTONE
     Indication: GASTRIC CANCER
     Dosage: 25 MG, BID
     Route: 048
     Dates: start: 20170323

REACTIONS (1)
  - Computerised tomogram thorax abnormal [Unknown]

NARRATIVE: CASE EVENT DATE: 20170908
